FAERS Safety Report 7344500-3 (Version None)
Quarter: 2011Q1

REPORT INFORMATION
  Report Type: 
  Country: None (occurrence: None)
  Receive Date: 20110310
  Receipt Date: 20110307
  Transmission Date: 20110831
  Serious: Yes (Other)
  Sender: FDA-Public Use
  Company Number: DE-BRISTOL-MYERS SQUIBB COMPANY-15556178

PATIENT
  Age: 7 Month
  Sex: Male

DRUGS (1)
  1. BARACLUDE [Suspect]
     Route: 050
     Dates: start: 20070101

REACTIONS (1)
  - CHRONIC MYELOID LEUKAEMIA [None]
